FAERS Safety Report 8524237-5 (Version None)
Quarter: 2012Q3

REPORT INFORMATION
  Report Type: 
  Country: None (occurrence: None)
  Receive Date: 20120720
  Receipt Date: 20120716
  Transmission Date: 20120928
  Serious: Yes (Life-Threatening, Hospitalization)
  Sender: FDA-Public Use
  Company Number: FR-ASTRAZENECA-2012SE49208

PATIENT
  Age: 56 Year
  Sex: Male

DRUGS (3)
  1. ESCITALOPRAM [Suspect]
     Route: 048
     Dates: start: 20110817
  2. TERCIAN [Suspect]
     Route: 048
     Dates: start: 20120503
  3. QUETIAPINE FUMARATE [Suspect]
     Route: 048
     Dates: start: 20120503

REACTIONS (1)
  - MYOCARDIAL INFARCTION [None]
